FAERS Safety Report 12700047 (Version 1)
Quarter: 2016Q3

REPORT INFORMATION
  Report Type: Spontaneous
  Country: AU (occurrence: AU)
  Receive Date: 20160830
  Receipt Date: 20160830
  Transmission Date: 20161109
  Serious: Yes (Disabling, Other)
  Sender: FDA-Public Use
  Company Number: PHHY2016AU114732

PATIENT
  Age: 41 Year
  Sex: Male

DRUGS (4)
  1. SANDOSTATIN LAR DEPOT [Suspect]
     Active Substance: OCTREOTIDE ACETATE
     Indication: ACROMEGALY
     Dosage: 10 MG, UNK
     Route: 065
  2. CABERGOLINE. [Suspect]
     Active Substance: CABERGOLINE
     Indication: PRODUCT USED FOR UNKNOWN INDICATION
     Dosage: 1 MG, (TWICE WEEKLY)
     Route: 065
  3. SANDOSTATIN LAR DEPOT [Suspect]
     Active Substance: OCTREOTIDE ACETATE
     Dosage: 20 MG, UNK
     Route: 065
  4. SANDOSTATIN LAR DEPOT [Suspect]
     Active Substance: OCTREOTIDE ACETATE
     Dosage: 30 MG, EVERY 4 WEEKLY
     Route: 065

REACTIONS (9)
  - Depression [Unknown]
  - Arthritis [Unknown]
  - Electrocardiogram QT prolonged [Unknown]
  - Bone pain [Unknown]
  - Thrombocytopenia [Unknown]
  - Arthralgia [Unknown]
  - Fatigue [Unknown]
  - Hypothyroidism [Unknown]
  - Headache [Unknown]
